FAERS Safety Report 9101788 (Version 1)
Quarter: 2013Q1

REPORT INFORMATION
  Report Type: Spontaneous
  Country: SE (occurrence: SE)
  Receive Date: 20130218
  Receipt Date: 20130218
  Transmission Date: 20140127
  Serious: Yes (Other)
  Sender: FDA-Public Use
  Company Number: SE-009507513-1302SWE007076

PATIENT
  Sex: Female

DRUGS (1)
  1. TRYPTIZOL [Suspect]
     Route: 048

REACTIONS (2)
  - Autoimmune hepatitis [Unknown]
  - Transaminases increased [Unknown]
